FAERS Safety Report 6999720-4 (Version None)
Quarter: 2010Q3

REPORT INFORMATION
  Report Type: 
  Country: None (occurrence: None)
  Receive Date: 20100920
  Receipt Date: 20100330
  Transmission Date: 20110219
  Serious: Yes (Death)
  Sender: FDA-Public Use
  Company Number: US-ASTRAZENECA-2006UW09025

PATIENT
  Age: 18751 Day
  Sex: Male
  Weight: 95.3 kg

DRUGS (9)
  1. SEROQUEL [Suspect]
     Indication: SCHIZOPHRENIA
     Dosage: 25 MG-800 MG
     Route: 048
     Dates: start: 20010301
  2. SEROQUEL [Suspect]
     Dosage: 100 TO 800 MG
     Route: 048
     Dates: start: 20021101, end: 20050801
  3. RISPERDAL [Suspect]
     Indication: SCHIZOPHRENIA
     Dosage: 1 MG - 4 MG
     Route: 065
     Dates: start: 19940101, end: 20040501
  4. ZYPREXA [Suspect]
     Indication: SCHIZOPHRENIA
     Dosage: 7.5 MG, 15 MG TO 20 MG
     Route: 065
     Dates: start: 19970101, end: 20050101
  5. PAROXETINE HCL [Concomitant]
     Dates: start: 20050610
  6. LISINOPRIL [Concomitant]
     Dates: start: 20050610
  7. PROCARDIA XL [Concomitant]
     Dates: start: 20050610
  8. TRAZODONE HCL [Concomitant]
     Dates: start: 20021120
  9. NEURONTIN [Concomitant]
     Dates: start: 20030317

REACTIONS (3)
  - DIABETIC KETOACIDOSIS [None]
  - HYPOGLYCAEMIA [None]
  - TYPE 2 DIABETES MELLITUS [None]
